FAERS Safety Report 18489667 (Version 1)
Quarter: 2020Q4

REPORT INFORMATION
  Report Type: Other
  Country: GB (occurrence: GB)
  Receive Date: 20201111
  Receipt Date: 20201111
  Transmission Date: 20210114
  Serious: Yes (Hospitalization)
  Sender: FDA-Public Use
  Company Number: GB-MACLEODS PHARMACEUTICALS US LTD-MAC2020029043

PATIENT

DRUGS (3)
  1. USTEKINUMAB [Concomitant]
     Active Substance: USTEKINUMAB
     Indication: NEPHROTIC SYNDROME
     Dosage: AS RX BY DERMATOLOGY - CHECK DOSE AS NOT ON LETTERS
     Route: 065
     Dates: start: 20200915
  2. FEXOFENADINE [Concomitant]
     Active Substance: FEXOFENADINE HYDROCHLORIDE
     Indication: NEPHROTIC SYNDROME
     Dosage: 1 DOSAGE FORM, QD
     Route: 065
     Dates: start: 20200722, end: 20200905
  3. VALSARTAN. [Suspect]
     Active Substance: VALSARTAN
     Indication: PRODUCT USED FOR UNKNOWN INDICATION
     Dosage: 80 MILLIGRAM, QD (CAPSULE)
     Route: 048
     Dates: start: 20200115, end: 20200210

REACTIONS (1)
  - Rhinitis [Not Recovered/Not Resolved]

NARRATIVE: CASE EVENT DATE: 20200115
